FAERS Safety Report 4858624-3 (Version None)
Quarter: 2005Q4

REPORT INFORMATION
  Report Type: 
  Country: None (occurrence: None)
  Receive Date: 20051219
  Receipt Date: 20051011
  Transmission Date: 20060501
  Serious: No
  Sender: FDA-Public Use
  Company Number: US-GLAXOSMITHKLINE-A0577788A

PATIENT
  Age: 62 Year
  Sex: Female

DRUGS (2)
  1. NICODERM CQ [Suspect]
  2. LORTAB [Concomitant]

REACTIONS (2)
  - DRUG INTERACTION [None]
  - PAIN [None]
